FAERS Safety Report 4471421-6 (Version None)
Quarter: 2004Q4

REPORT INFORMATION
  Report Type: 
  Country: None (occurrence: None)
  Receive Date: 20041007
  Receipt Date: 20040907
  Transmission Date: 20050328
  Serious: Yes (Hospitalization)
  Sender: FDA-Public Use
  Company Number: 2197

PATIENT
  Age: 27 Year
  Sex: Male

DRUGS (2)
  1. PHENOBARBITAL TAB [Suspect]
  2. PREDNISONE [Suspect]

REACTIONS (4)
  - CONVULSION [None]
  - MEDICATION ERROR [None]
  - PYREXIA [None]
  - RESPIRATORY FAILURE [None]
